FAERS Safety Report 5071866-X (Version None)
Quarter: 2006Q3

REPORT INFORMATION
  Report Type: 
  Country: None (occurrence: None)
  Receive Date: 20060804
  Receipt Date: 20060731
  Transmission Date: 20061208
  Serious: Yes (Death)
  Sender: FDA-Public Use
  Company Number: US-BRISTOL-MYERS SQUIBB COMPANY-13460407

PATIENT
  Age: 51 Year
  Sex: Male

DRUGS (3)
  1. FOSINOPRIL SODIUM [Suspect]
  2. PROTONIX [Concomitant]
  3. ESOFEX [Concomitant]

REACTIONS (1)
  - CEREBRAL HAEMORRHAGE [None]
